FAERS Safety Report 15982548 (Version 1)
Quarter: 2019Q1

REPORT INFORMATION
  Report Type: Spontaneous
  Country: US (occurrence: US)
  Receive Date: 20190219
  Receipt Date: 20190219
  Transmission Date: 20190418
  Serious: Yes (Other)
  Sender: FDA-Public Use
  Company Number: US-ENDO PHARMACEUTICALS INC-2018-040237

PATIENT
  Age: 72 Year
  Sex: Male
  Weight: 95.24 kg

DRUGS (1)
  1. XIAFLEX [Suspect]
     Active Substance: COLLAGENASE CLOSTRIDIUM HISTOLYTICUM
     Indication: DUPUYTREN^S CONTRACTURE
     Dosage: UNK MG, 1 INJECTION
     Route: 065
     Dates: start: 20180417, end: 20180417

REACTIONS (7)
  - Wrong technique in product usage process [Unknown]
  - Contusion [Unknown]
  - Peripheral swelling [Unknown]
  - Dupuytren^s contracture [Not Recovered/Not Resolved]
  - Skin laceration [Unknown]
  - Wound [Unknown]
  - Incorrect route of product administration [Unknown]

NARRATIVE: CASE EVENT DATE: 2018
